FAERS Safety Report 9419757 (Version 1)
Quarter: 2013Q3

REPORT INFORMATION
  Report Type: Spontaneous
  Country: GB (occurrence: GB)
  Receive Date: 20130725
  Receipt Date: 20130725
  Transmission Date: 20140515
  Serious: Yes (Hospitalization)
  Sender: FDA-Public Use
  Company Number: ALCN2013GB000680

PATIENT
  Age: 68 Year
  Sex: Female
  Weight: 46 kg

DRUGS (17)
  1. CIPROFLOXACIN [Suspect]
     Dosage: UNK
     Route: 065
     Dates: start: 20130611, end: 20130616
  2. CIPROFLOXACIN [Suspect]
     Dosage: UNK
     Route: 065
     Dates: start: 20130702
  3. ADCAL [Concomitant]
     Dosage: UNK
     Dates: start: 20130530, end: 20130627
  4. ATORVASTATIN [Concomitant]
     Dosage: UNK
     Dates: start: 20130509
  5. BUDESONIDE [Concomitant]
     Dosage: UNK
     Dates: start: 20130308
  6. CARBOCISTEINE [Concomitant]
     Dosage: UNK
     Dates: start: 20130308
  7. CLOPIDOGREL [Concomitant]
     Dosage: UNK
     Dates: start: 20130611
  8. DILTIAZEM HYDROCHLORIDE [Concomitant]
     Dosage: UNK
     Dates: start: 20130211
  9. DOXYCYCLINE [Concomitant]
     Dosage: UNK
     Dates: start: 20130604, end: 20130617
  10. IPRATROPIUM BROMIDE [Concomitant]
     Dosage: UNK
     Dates: start: 20130618
  11. LANSOPRAZOLE [Concomitant]
     Dosage: UNK
     Dates: start: 20130308
  12. PREDNISOLONE [Concomitant]
     Dosage: UNK
     Dates: start: 20130503
  13. SALBUTAMOL [Concomitant]
     Dosage: UNK
     Dates: start: 20130308
  14. SIMPLE LINCTUS [Concomitant]
     Dosage: UNK
     Dates: start: 20130604, end: 20130614
  15. TIOTROPIUM [Concomitant]
     Dosage: UNK
     Dates: start: 20130308, end: 20130619
  16. TRAMADOL [Concomitant]
     Dosage: UNK
     Dates: start: 20130308
  17. VENTOLIN [Concomitant]
     Dosage: UNK
     Dates: start: 20130308

REACTIONS (1)
  - Tenosynovitis [Recovering/Resolving]
